FAERS Safety Report 4503575-7 (Version None)
Quarter: 2004Q4

REPORT INFORMATION
  Report Type: 
  Country: None (occurrence: None)
  Receive Date: 20041112
  Receipt Date: 20041105
  Transmission Date: 20050328
  Serious: Yes (Life-Threatening)
  Sender: FDA-Public Use
  Company Number: 04H-151-0279928-00

PATIENT
  Age: 29 Year
  Sex: Male
  Weight: 89 kg

DRUGS (3)
  1. EPINEPHRINE [Suspect]
     Dosage: 1 MG, ONCE, INTRAVENOUS
     Route: 042
  2. MORPHINE [Concomitant]
  3. TILIDINE [Concomitant]

REACTIONS (13)
  - ACCIDENTAL EXPOSURE [None]
  - ACUTE PULMONARY OEDEMA [None]
  - CHEST PAIN [None]
  - CIRCULATORY COLLAPSE [None]
  - GENERAL PHYSICAL HEALTH DETERIORATION [None]
  - HEADACHE [None]
  - HEPATIC ENZYME INCREASED [None]
  - HYPERGLYCAEMIA [None]
  - HYPOKALAEMIA [None]
  - LEUKOCYTOSIS [None]
  - MEDICATION ERROR [None]
  - PHARYNGOLARYNGEAL PAIN [None]
  - STATUS ASTHMATICUS [None]
